FAERS Safety Report 7742933-4 (Version None)
Quarter: 2011Q3

REPORT INFORMATION
  Report Type: 
  Country: None (occurrence: None)
  Receive Date: 20110912
  Receipt Date: 20110901
  Transmission Date: 20111222
  Serious: Yes (Hospitalization)
  Sender: FDA-Public Use
  Company Number: JP-ELI_LILLY_AND_COMPANY-JP201106006923

PATIENT
  Age: 78 Year
  Sex: Female

DRUGS (2)
  1. FORTEO [Suspect]
     Dosage: UNK
     Route: 058
  2. FORTEO [Suspect]
     Dosage: UNK
     Route: 058

REACTIONS (3)
  - ABDOMINAL DISTENSION [None]
  - BACK PAIN [None]
  - SPINAL COMPRESSION FRACTURE [None]
